FAERS Safety Report 4646177-4 (Version None)
Quarter: 2005Q2

REPORT INFORMATION
  Report Type: 
  Country: None (occurrence: None)
  Receive Date: 20050422
  Receipt Date: 20050422
  Transmission Date: 20051028
  Serious: Yes (Hospitalization, Disabling)
  Sender: FDA-Public Use
  Company Number: None

PATIENT
  Age: 53 Year
  Sex: Female
  Weight: 96.1626 kg

DRUGS (5)
  1. REMERON [Suspect]
     Indication: INSOMNIA
     Dosage: 15MG   ONCE    ORAL
     Route: 048
     Dates: start: 20050419, end: 20050420
  2. TOPROL-XL [Concomitant]
  3. SYNTHROID [Concomitant]
  4. PROTONIX [Concomitant]
  5. PROMENSIL [Concomitant]

REACTIONS (9)
  - COUGH [None]
  - DEPRESSED MOOD [None]
  - FEAR [None]
  - HEADACHE [None]
  - NERVOUS SYSTEM DISORDER [None]
  - NIGHTMARE [None]
  - SOMNOLENCE [None]
  - THIRST [None]
  - VISION BLURRED [None]
